FAERS Safety Report 26044998 (Version 1)
Quarter: 2025Q4

REPORT INFORMATION
  Report Type: Spontaneous
  Country: US (occurrence: US)
  Receive Date: 20251114
  Receipt Date: 20251114
  Transmission Date: 20260119
  Serious: Yes (Death, Other)
  Sender: MUNDIPHARMA EDO
  Company Number: US-NAPPMUNDI-GBR-2025-0130314

PATIENT
  Age: 31 Year
  Sex: Male

DRUGS (1)
  1. REZZAYO [Suspect]
     Active Substance: REZAFUNGIN
     Indication: Product used for unknown indication
     Dosage: UNK

REACTIONS (1)
  - Death [Fatal]

NARRATIVE: CASE EVENT DATE: 20251106
